FAERS Safety Report 7122319-6 (Version None)
Quarter: 2010Q4

REPORT INFORMATION
  Report Type: 
  Country: None (occurrence: None)
  Receive Date: 20101124
  Receipt Date: 20101103
  Transmission Date: 20110411
  Serious: Yes (Hospitalization)
  Sender: FDA-Public Use
  Company Number: PHHO2004VE15141

PATIENT
  Sex: Male
  Weight: 10.5 kg

DRUGS (4)
  1. ELIDEL [Suspect]
     Indication: DERMATITIS ATOPIC
     Dosage: APPLIED TWICE DAILY
     Route: 061
     Dates: start: 20040701, end: 20041022
  2. ELIDEL [Suspect]
     Dosage: TWICE DAILY
     Route: 061
     Dates: start: 20060110, end: 20060202
  3. ZADITEN [Concomitant]
  4. ELOCON [Concomitant]

REACTIONS (2)
  - DRUG INEFFECTIVE [None]
  - IMPETIGO [None]
